FAERS Safety Report 7439943-3 (Version None)
Quarter: 2011Q2

REPORT INFORMATION
  Report Type: 
  Country: None (occurrence: None)
  Receive Date: 20110427
  Receipt Date: 20110105
  Transmission Date: 20111010
  Serious: Yes (Hospitalization, Other)
  Sender: FDA-Public Use
  Company Number: US-BAYER-2011-021205

PATIENT
  Age: 3 Year
  Sex: Male

DRUGS (2)
  1. LEUKINE [Suspect]
     Dosage: UNK
     Dates: start: 20110119
  2. LEUKINE [Suspect]
     Indication: NEUROBLASTOMA
     Dosage: FIRST ROUND-DAY 8 DOSE DOUBLED

REACTIONS (2)
  - PYREXIA [None]
  - VOMITING [None]
